FAERS Safety Report 14668302 (Version 1)
Quarter: 2018Q1

REPORT INFORMATION
  Report Type: Spontaneous
  Country: BR (occurrence: BR)
  Receive Date: 20180322
  Receipt Date: 20180322
  Transmission Date: 20180509
  Serious: Yes (Other)
  Sender: FDA-Public Use
  Company Number: BR-ABBVIE-18K-020-2292827-00

PATIENT
  Sex: Female

DRUGS (5)
  1. HUMIRA [Suspect]
     Active Substance: ADALIMUMAB
     Route: 058
  2. REMICADE [Suspect]
     Active Substance: INFLIXIMAB
     Route: 065
     Dates: end: 201707
  3. TEVAMETHO [Suspect]
     Active Substance: METHOTREXATE
     Indication: PRODUCT USED FOR UNKNOWN INDICATION
     Route: 065
  4. REMICADE [Suspect]
     Active Substance: INFLIXIMAB
     Indication: PRODUCT USED FOR UNKNOWN INDICATION
     Route: 065
  5. HUMIRA [Suspect]
     Active Substance: ADALIMUMAB
     Indication: PRODUCT USED FOR UNKNOWN INDICATION
     Route: 058

REACTIONS (16)
  - Injection site warmth [Unknown]
  - Malaise [Unknown]
  - Wound [Unknown]
  - Pruritus [Unknown]
  - Blood pressure increased [Recovered/Resolved]
  - Liver disorder [Unknown]
  - Injection site discomfort [Unknown]
  - Injection site pain [Unknown]
  - Alopecia [Unknown]
  - Rash erythematous [Unknown]
  - Injection site erythema [Unknown]
  - Autoimmune hepatitis [Unknown]
  - Exposure during pregnancy [Unknown]
  - Skin discolouration [Unknown]
  - Vomiting [Unknown]
  - Injection site swelling [Unknown]
